FAERS Safety Report 13069051 (Version 1)
Quarter: 2016Q4

REPORT INFORMATION
  Report Type: Spontaneous
  Country: US (occurrence: US)
  Receive Date: 20161228
  Receipt Date: 20161228
  Transmission Date: 20170207
  Serious: No
  Sender: FDA-Public Use
  Company Number: US-ASTRAZENECA-2016SF31525

PATIENT
  Age: 62 Year
  Sex: Male

DRUGS (1)
  1. FASLODEX [Suspect]
     Active Substance: FULVESTRANT
     Route: 030

REACTIONS (1)
  - Platelet count abnormal [Unknown]
